FAERS Safety Report 5599973-3 (Version None)
Quarter: 2007Q4

REPORT INFORMATION
  Report Type: 
  Country: None (occurrence: None)
  Receive Date: 20071226
  Receipt Date: 20070703
  Transmission Date: 20080405
  Serious: Yes (Hospitalization)
  Sender: FDA-Public Use
  Company Number: 241906

PATIENT
  Age: 26 Year
  Sex: Male
  Weight: 122.4 kg

DRUGS (3)
  1. RAPTIVA [Suspect]
     Indication: PSORIASIS
     Dosage: 1.2 ML, 1/WEEK, SUBCUTANCEOUS
     Route: 058
     Dates: start: 20070301, end: 20070508
  2. SORIATANE [Concomitant]
  3. FLUOCINOLONE ACETONIDE 0.01% (FLUOCINOLONE ACETONIDE) [Concomitant]

REACTIONS (1)
  - HAEMOLYTIC ANAEMIA [None]
